FAERS Safety Report 8487073-4 (Version None)
Quarter: 2012Q3

REPORT INFORMATION
  Report Type: 
  Country: None (occurrence: None)
  Receive Date: 20120704
  Receipt Date: 20120630
  Transmission Date: 20120928
  Serious: Yes (Other)
  Sender: FDA-Public Use
  Company Number: PHHY2012MX057136

PATIENT
  Age: 65 Year
  Sex: Male

DRUGS (2)
  1. DIOVAN HCT [Concomitant]
     Indication: HYPERTENSION
     Dosage: 80/12.5MG, DAILY
  2. DIOVAN [Suspect]
     Indication: HYPERTENSION
     Dosage: 80 MG, DAILY
     Dates: start: 20120207

REACTIONS (1)
  - CORONARY ARTERY OCCLUSION [None]
